FAERS Safety Report 10929518 (Version 1)
Quarter: 2015Q1

REPORT INFORMATION
  Report Type: Spontaneous
  Country: US (occurrence: None)
  Receive Date: 20150317
  Receipt Date: 20150317
  Transmission Date: 20150721
  Serious: Yes (Hospitalization)
  Sender: FDA-Public Use
  Company Number: None

PATIENT
  Age: 72 Year
  Sex: Male

DRUGS (6)
  1. CHLORPROMAZINE [Suspect]
     Active Substance: CHLORPROMAZINE
     Indication: NAUSEA
     Dates: start: 201309, end: 20131101
  2. LISINPORIL [Concomitant]
  3. DOXAZOSIN [Concomitant]
     Active Substance: DOXAZOSIN\DOXAZOSIN MESYLATE
  4. CISPLATIN. [Suspect]
     Active Substance: CISPLATIN
     Indication: SQUAMOUS CELL CARCINOMA OF HEAD AND NECK
     Dates: start: 20130920, end: 20131101
  5. ATENOLOL. [Concomitant]
     Active Substance: ATENOLOL
  6. MACRODANTIN [Suspect]
     Active Substance: NITROFURANTOIN
     Indication: URINARY TRACT INFECTION
     Dates: start: 20131029, end: 20131101

REACTIONS (5)
  - Urinary tract infection [None]
  - Nausea [None]
  - Hepatitis cholestatic [None]
  - Drug-induced liver injury [None]
  - Cholangitis [None]

NARRATIVE: CASE EVENT DATE: 20131115
